FAERS Safety Report 4846928-X (Version None)
Quarter: 2005Q4

REPORT INFORMATION
  Report Type: 
  Country: None (occurrence: None)
  Receive Date: 20051202
  Receipt Date: 20051122
  Transmission Date: 20060501
  Serious: Yes (Hospitalization)
  Sender: FDA-Public Use
  Company Number: HQWYE723428NOV05

PATIENT
  Age: 73 Year
  Sex: Male

DRUGS (3)
  1. TAZONAM (PIPERACILLIN/TAZOBACTAM, INJECTION) [Suspect]
     Indication: ADHESIOLYSIS
     Dosage: 4 G 2X PER 1 DAY
     Dates: start: 20050624, end: 20050703
  2. TAZONAM (PIPERACILLIN/TAZOBACTAM, INJECTION) [Suspect]
     Indication: APPENDICECTOMY
     Dosage: 4 G 2X PER 1 DAY
     Dates: start: 20050624, end: 20050703
  3. ANAEROBEX (METRONIDAZOLE) [Concomitant]

REACTIONS (3)
  - CARDIAC ARREST [None]
  - PNEUMONIA ASPIRATION [None]
  - POSTOPERATIVE ILEUS [None]
